FAERS Safety Report 9498904 (Version 2)
Quarter: 2013Q3

REPORT INFORMATION
  Report Type: Report from Study
  Country: IT (occurrence: IT)
  Receive Date: 20130904
  Receipt Date: 20130904
  Transmission Date: 20140515
  Serious: Yes (Life-Threatening, Hospitalization)
  Sender: FDA-Public Use
  Company Number: IT-BAYER-2012-122677

PATIENT
  Age: 52 Year
  Sex: Female
  Weight: 47 kg

DRUGS (3)
  1. REGORAFENIB [Suspect]
     Indication: COLON CANCER
     Dosage: 160 MG/DAY
     Route: 048
     Dates: start: 20121112, end: 20121118
  2. TRIATEC [Concomitant]
     Indication: HYPERTENSION
     Dosage: DAILY DOSE 5 MG
     Route: 048
     Dates: start: 2007
  3. NORVASC [Concomitant]
     Indication: HYPERTENSION
     Dosage: DAILY DOSE 5 MG
     Route: 048
     Dates: start: 2007

REACTIONS (1)
  - Acute myocardial infarction [Recovered/Resolved]
